FAERS Safety Report 5924505-7 (Version None)
Quarter: 2008Q3

REPORT INFORMATION
  Report Type: 
  Country: None (occurrence: None)
  Receive Date: 20080909
  Receipt Date: 20080317
  Transmission Date: 20090109
  Serious: Yes (Hospitalization)
  Sender: FDA-Public Use
  Company Number: 163-20785-08021006

PATIENT
  Age: 84 Year
  Sex: Female

DRUGS (2)
  1. THALOMID [Suspect]
     Indication: MYELODYSPLASTIC SYNDROME
     Dosage: 100 MG, 1 IN 1 D, ORAL ; 50MG-100MG, DAILY, ORAL
     Route: 048
     Dates: start: 20070313, end: 20070501
  2. THALOMID [Suspect]
     Indication: MYELODYSPLASTIC SYNDROME
     Dosage: 100 MG, 1 IN 1 D, ORAL ; 50MG-100MG, DAILY, ORAL
     Route: 048
     Dates: start: 20070529

REACTIONS (1)
  - FALL [None]
